FAERS Safety Report 4366597-5 (Version None)
Quarter: 2004Q2

REPORT INFORMATION
  Report Type: 
  Country: None (occurrence: None)
  Receive Date: 20040527
  Receipt Date: 20040519
  Transmission Date: 20050107
  Serious: Yes (Congenital Anomaly)
  Sender: FDA-Public Use
  Company Number: AU-GLAXOSMITHKLINE-B0333463A

PATIENT
  Sex: Female

DRUGS (2)
  1. LAMICTAL [Suspect]
  2. GABITRIL [Concomitant]

REACTIONS (2)
  - CEREBRAL HAEMORRHAGE [None]
  - PREGNANCY OF PARTNER [None]
